FAERS Safety Report 9440165 (Version 1)
Quarter: 2013Q3

REPORT INFORMATION
  Report Type: Spontaneous
  Country: US (occurrence: US)
  Receive Date: 20130805
  Receipt Date: 20130805
  Transmission Date: 20140515
  Serious: No
  Sender: FDA-Public Use
  Company Number: PHEH2013US016143

PATIENT
  Sex: Female

DRUGS (4)
  1. TASIGNA [Suspect]
     Indication: LEUKAEMIA
     Route: 048
     Dates: start: 201111
  2. LISINOPRIL [Concomitant]
  3. METOPROLOL [Concomitant]
  4. ATORVASTATIN [Concomitant]

REACTIONS (2)
  - Alopecia [Unknown]
  - Dry skin [Unknown]
